FAERS Safety Report 9774289 (Version 2)
Quarter: 2014Q1

REPORT INFORMATION
  Report Type: Report from Study
  Country: BR (occurrence: BR)
  Receive Date: 20131220
  Receipt Date: 20140309
  Transmission Date: 20141002
  Serious: Yes (Hospitalization)
  Sender: FDA-Public Use
  Company Number: BR-ROCHE-1322746

PATIENT
  Sex: Female
  Weight: 67 kg

DRUGS (10)
  1. MABTHERA [Suspect]
     Indication: RHEUMATOID ARTHRITIS
     Route: 042
  2. METHOTREXATE [Concomitant]
     Indication: RHEUMATOID ARTHRITIS
     Route: 065
  3. PARACETAMOL [Concomitant]
     Indication: RHEUMATOID ARTHRITIS
     Route: 065
  4. FOLIC ACID [Concomitant]
  5. PREDNISONE [Concomitant]
     Indication: RHEUMATOID ARTHRITIS
     Route: 065
  6. NIMESULIDE [Concomitant]
     Indication: RHEUMATOID ARTHRITIS
  7. VIMOVO [Concomitant]
     Indication: RHEUMATOID ARTHRITIS
  8. TYLEX (BRAZIL) [Concomitant]
     Indication: RHEUMATOID ARTHRITIS
     Route: 065
  9. OMEPRAZOLE [Concomitant]
     Route: 065
  10. LOSARTAN [Concomitant]
     Indication: HYPERTENSION
     Route: 065

REACTIONS (1)
  - Tendon rupture [Recovered/Resolved]
